FAERS Safety Report 8998183 (Version 1)
Quarter: 2013Q1

REPORT INFORMATION
  Report Type: Spontaneous
  Country: US (occurrence: US)
  Receive Date: 20130104
  Receipt Date: 20130104
  Transmission Date: 20140127
  Serious: Yes (Other)
  Sender: FDA-Public Use
  Company Number: US-ALEXION-A201202514

PATIENT
  Sex: Male

DRUGS (3)
  1. SOLIRIS 300MG [Suspect]
     Indication: PAROXYSMAL NOCTURNAL HAEMOGLOBINURIA
     Dosage: 600 MG, QW +/- 2 DAYS X 4 DOSES
     Route: 042
  2. SOLIRIS 300MG [Suspect]
     Dosage: 900 MG, SINGLE Q7 +/- 2 DAYS LATER
     Route: 042
  3. SOLIRIS 300MG [Suspect]
     Dosage: 900 MG, Q2W +/- 2 DAYS
     Route: 042

REACTIONS (2)
  - Intravascular haemolysis [Recovered/Resolved]
  - Viral infection [Unknown]
